FAERS Safety Report 6568067-2 (Version None)
Quarter: 2010Q1

REPORT INFORMATION
  Report Type: 
  Country: None (occurrence: None)
  Receive Date: 20100128
  Receipt Date: 20100118
  Transmission Date: 20100710
  Serious: Yes (Other)
  Sender: FDA-Public Use
  Company Number: 230343J10USA

PATIENT
  Age: 30 Year
  Sex: Female
  Weight: 86 kg

DRUGS (7)
  1. REBIF [Suspect]
     Indication: MULTIPLE SCLEROSIS
     Dosage: 44 MCG, 3 IN 1 WEEKS, SUBCUTANEOUS
     Route: 058
     Dates: start: 20090618
  2. IMITREX [Concomitant]
  3. PROZAC [Concomitant]
  4. ZONEGRAN [Concomitant]
  5. ZANAFLEX [Concomitant]
  6. AMBIEN [Concomitant]
  7. PERCOCET [Concomitant]

REACTIONS (6)
  - BRAIN CONTUSION [None]
  - CONCUSSION [None]
  - FALL [None]
  - HEAD INJURY [None]
  - HYPERTENSION [None]
  - URINARY INCONTINENCE [None]
